FAERS Safety Report 24303332 (Version 1)
Quarter: 2024Q3

REPORT INFORMATION
  Report Type: Report from Study
  Country: US (occurrence: US)
  Receive Date: 20240910
  Receipt Date: 20240910
  Transmission Date: 20241016
  Serious: No
  Sender: ALEXION PHARMACEUTICALS
  Company Number: US-ALXN-202409USA000529US

PATIENT
  Sex: Male

DRUGS (1)
  1. STRENSIQ [Suspect]
     Active Substance: ASFOTASE ALFA
     Indication: Product used for unknown indication
     Dosage: UNK
     Route: 065

REACTIONS (7)
  - Arthralgia [Unknown]
  - Exercise tolerance decreased [Unknown]
  - Fatigue [Unknown]
  - Tooth loss [Unknown]
  - Vitamin B6 decreased [Unknown]
  - Injection site pain [Unknown]
  - Injection site rash [Unknown]
